FAERS Safety Report 5653824-7 (Version None)
Quarter: 2008Q1

REPORT INFORMATION
  Report Type: 
  Country: None (occurrence: None)
  Receive Date: 20080306
  Receipt Date: 20080222
  Transmission Date: 20080703
  Serious: Yes (Hospitalization, Other)
  Sender: FDA-Public Use
  Company Number: US-KINGPHARMUSA00001-K200800237

PATIENT

DRUGS (9)
  1. ALTACE [Suspect]
     Indication: CORONARY ARTERY DISEASE
     Dosage: 5 MG, QD
     Route: 048
     Dates: start: 20070201
  2. KARDEGIC                           /00002703/ [Suspect]
     Indication: CORONARY ARTERY DISEASE
     Dosage: 160 MG, QD
     Route: 048
     Dates: start: 20070201
  3. TMC 125 [Suspect]
     Indication: HIV INFECTION
     Dosage: 800 MG, QD
     Route: 048
     Dates: start: 20070522
  4. NORVIR [Suspect]
     Indication: HIV INFECTION
     Dosage: 200 MG, QD
     Route: 048
     Dates: start: 20070522
  5. FUZEON [Suspect]
     Indication: HIV INFECTION
     Dosage: 180 MG, QD
     Route: 058
     Dates: start: 20070522
  6. PREZISTA [Suspect]
     Indication: HIV INFECTION
     Dosage: 1200 MG, QD
     Route: 048
     Dates: start: 20070522
  7. EZETROL [Concomitant]
     Indication: HYPERCHOLESTEROLAEMIA
     Dosage: 10 MG, UNK
     Route: 048
     Dates: start: 20070201
  8. FRACTAL     /01224501/ [Concomitant]
     Indication: HYPERCHOLESTEROLAEMIA
     Dosage: 80 MG, UNK
     Route: 048
     Dates: start: 20070201
  9. CARDENSIEL [Concomitant]
     Indication: CORONARY ARTERY DISEASE
     Dosage: 5 MG, UNK
     Route: 048
     Dates: start: 20070201

REACTIONS (6)
  - COUGH [None]
  - ODYNOPHAGIA [None]
  - OESOPHAGEAL INFECTION [None]
  - OESOPHAGEAL PAIN [None]
  - OESOPHAGEAL ULCER [None]
  - PYREXIA [None]
